FAERS Safety Report 5784586-0 (Version None)
Quarter: 2008Q2

REPORT INFORMATION
  Report Type: 
  Country: None (occurrence: None)
  Receive Date: 20080605
  Receipt Date: 20080409
  Transmission Date: 20081010
  Serious: No
  Sender: FDA-Public Use
  Company Number: A0721853A

PATIENT

DRUGS (2)
  1. ALLI [Suspect]
  2. UNKNOWN MEDICATION [Concomitant]

REACTIONS (2)
  - FOOD CRAVING [None]
  - HUNGER [None]
